FAERS Safety Report 7727913 (Version 3)
Quarter: 2013Q1

REPORT INFORMATION
  Report Type: Report from Study
  Country: JP (occurrence: JP)
  Receive Date: 20101222
  Receipt Date: 20130326
  Transmission Date: 20140127
  Serious: Yes (Hospitalization)
  Sender: FDA-Public Use
  Company Number: JP-ABBOTT-10P-087-0692934-00

PATIENT
  Age: 43 Year
  Sex: Female

DRUGS (3)
  1. LEUPRORELIN ACETATE [Suspect]
     Indication: BREAST CANCER
     Route: 058
     Dates: start: 20070704, end: 20100922
  2. NOLVADEX [Suspect]
     Indication: BREAST CANCER
     Route: 048
     Dates: start: 20070704, end: 20101215
  3. LOXONIN [Concomitant]
     Indication: HEADACHE
     Dates: start: 20090724

REACTIONS (1)
  - Uterine polyp [Recovered/Resolved]
